FAERS Safety Report 23932513 (Version 1)
Quarter: 2024Q2

REPORT INFORMATION
  Report Type: Spontaneous
  Country: US (occurrence: None)
  Receive Date: 20240531
  Receipt Date: 20240531
  Transmission Date: 20240716
  Serious: Yes (unspecified)
  Sender: FDA-Public Use
  Company Number: None

PATIENT
  Age: 5 Year
  Sex: Male
  Weight: 18.1 kg

DRUGS (7)
  1. ASPARLAS [Suspect]
     Active Substance: CALASPARGASE PEGOL-MKNL
     Indication: B-cell type acute leukaemia
     Dosage: 1875  IU INTERNATIONAL UNIT(S)  ONCE INTRAVENOUS?
     Route: 042
     Dates: start: 20240309, end: 20240507
  2. VINCRISTINE [Concomitant]
     Dates: start: 20240306
  3. METHOTREXATE [Concomitant]
     Active Substance: METHOTREXATE
     Dates: start: 20240313
  4. DEXAMETHASONE [Concomitant]
     Active Substance: DEXAMETHASONE
     Dates: start: 20240306, end: 20240402
  5. CYCLOPHOSPHAMIDE [Concomitant]
     Dates: start: 20240423, end: 20240522
  6. CYTARABINE [Concomitant]
     Dates: start: 20240423
  7. MERCAPTOPURINE [Concomitant]
     Dates: start: 20240423, end: 20240506

REACTIONS (4)
  - Rash erythematous [None]
  - Pruritus [None]
  - Swelling face [None]
  - Infusion related reaction [None]

NARRATIVE: CASE EVENT DATE: 20240507
